FAERS Safety Report 6203467-1 (Version None)
Quarter: 2009Q2

REPORT INFORMATION
  Report Type: 
  Country: None (occurrence: None)
  Receive Date: 20090527
  Receipt Date: 20090515
  Transmission Date: 20091009
  Serious: Yes (Hospitalization, Other)
  Sender: FDA-Public Use
  Company Number: US-ELI_LILLY_AND_COMPANY-US200905003260

PATIENT
  Sex: Female

DRUGS (13)
  1. CYMBALTA [Suspect]
     Indication: MYALGIA
     Dosage: 90 MG, UNK
  2. VANCOMYCIN HCL [Concomitant]
     Route: 042
  3. LEVOFLOXACIN [Concomitant]
     Route: 042
  4. LAMOTRIGINE [Concomitant]
     Route: 042
  5. VERSED [Concomitant]
     Indication: SEDATION
  6. COPAXONE [Concomitant]
  7. PROTONIX [Concomitant]
     Indication: STRESS ULCER
  8. SENNA [Concomitant]
  9. BISCODYL [Concomitant]
  10. ALBUTEROL [Concomitant]
  11. MUCOMYST [Concomitant]
  12. BETA BLOCKING AGENTS AND OTHER ANTIHYPERTENSI [Concomitant]
  13. ACETAZOLAMIDE [Concomitant]

REACTIONS (3)
  - GASTROINTESTINAL TUBE INSERTION [None]
  - MULTIPLE SCLEROSIS [None]
  - PNEUMONIA [None]
